FAERS Safety Report 24081730 (Version 1)
Quarter: 2024Q3

REPORT INFORMATION
  Report Type: Spontaneous
  Country: US (occurrence: None)
  Receive Date: 20240712
  Receipt Date: 20240712
  Transmission Date: 20241017
  Serious: Yes (Other)
  Sender: US WORLDMEDS
  Company Number: US-USWM, LLC-UWM202403-000018

PATIENT
  Age: 52 Year
  Sex: Male

DRUGS (2)
  1. LUCEMYRA [Suspect]
     Active Substance: LOFEXIDINE
     Indication: Product used for unknown indication
     Dates: start: 202403
  2. LUCEMYRA [Suspect]
     Active Substance: LOFEXIDINE
     Dates: start: 202403, end: 202403

REACTIONS (1)
  - Hypotension [Recovered/Resolved]

NARRATIVE: CASE EVENT DATE: 20240324
